FAERS Safety Report 12990565 (Version 1)
Quarter: 2016Q4

REPORT INFORMATION
  Report Type: Spontaneous
  Country: US (occurrence: US)
  Receive Date: 20161201
  Receipt Date: 20161201
  Transmission Date: 20170207
  Serious: Yes (Hospitalization)
  Sender: FDA-Public Use
  Company Number: PHHY2016US162313

PATIENT
  Age: 73 Year
  Sex: Male

DRUGS (1)
  1. PREDNISONE. [Suspect]
     Active Substance: PREDNISONE
     Indication: PULMONARY SARCOIDOSIS
     Dosage: 40 MG, QD
     Route: 048

REACTIONS (5)
  - Ischaemic stroke [Unknown]
  - Diffuse vasculitis [Recovered/Resolved]
  - Seizure [Recovering/Resolving]
  - Meningitis cryptococcal [Recovering/Resolving]
  - Encephalopathy [Recovering/Resolving]
